FAERS Safety Report 21556060 (Version 1)
Quarter: 2022Q4

REPORT INFORMATION
  Report Type: Spontaneous
  Country: CN (occurrence: CN)
  Receive Date: 20221104
  Receipt Date: 20221104
  Transmission Date: 20230113
  Serious: Yes (Hospitalization, Other)
  Sender: FDA-Public Use
  Company Number: None

PATIENT
  Age: 57 Year
  Sex: Male
  Weight: 61 kg

DRUGS (6)
  1. CYCLOPHOSPHAMIDE [Suspect]
     Active Substance: CYCLOPHOSPHAMIDE
     Indication: Phaeochromocytoma
     Dosage: 1300 MG, QD, DILUTED WITH 500 ML OF 0.9% SODIUM CHLORIDE
     Route: 041
     Dates: start: 20220902, end: 20220902
  2. SODIUM CHLORIDE [Suspect]
     Active Substance: SODIUM CHLORIDE
     Indication: Medication dilution
     Dosage: 500 ML, QD, USED TO DILUTE 1300 MG CYCLOPHOSPHAMIDE
     Route: 041
     Dates: start: 20220902, end: 20220902
  3. SODIUM CHLORIDE [Suspect]
     Active Substance: SODIUM CHLORIDE
     Dosage: 100 ML, QD, USED TO DILUTE 2MG VINCRISTINE SULFATE
     Route: 041
     Dates: start: 20220902, end: 20220902
  4. DEXTROSE MONOHYDRATE [Suspect]
     Active Substance: DEXTROSE MONOHYDRATE
     Indication: Medication dilution
     Dosage: 250 ML, QD, USED TO DILUTE 0.96 G DACARBAZINE
     Route: 041
     Dates: start: 20220902, end: 20220903
  5. DACARBAZINE [Suspect]
     Active Substance: DACARBAZINE
     Indication: Phaeochromocytoma
     Dosage: 0.96 G, QD, DILUTE WITH 250 ML OF GLUCOSE
     Route: 041
     Dates: start: 20220902, end: 20220903
  6. VINCRISTINE SULFATE [Suspect]
     Active Substance: VINCRISTINE SULFATE
     Indication: Phaeochromocytoma
     Dosage: 2 MG, QD, DILUTE WITH 100 ML OF 0.9% SODIUM CHLORIDE
     Route: 041
     Dates: start: 20220902, end: 20220902

REACTIONS (1)
  - Granulocyte count decreased [Recovering/Resolving]

NARRATIVE: CASE EVENT DATE: 20220928
